FAERS Safety Report 18256654 (Version 1)
Quarter: 2020Q3

REPORT INFORMATION
  Report Type: Spontaneous
  Country: FR (occurrence: FR)
  Receive Date: 20200911
  Receipt Date: 20200911
  Transmission Date: 20201103
  Serious: Yes (Hospitalization)
  Sender: FDA-Public Use
  Company Number: FR-TEVA-2020-FR-1825055

PATIENT
  Age: 69 Year
  Sex: Female

DRUGS (5)
  1. AMOROLFINE MYLAN 5 %, VERNIS A ONGLES MEDICAMENTEUX [Suspect]
     Active Substance: AMOROLFINE
     Indication: DERMATOPHYTOSIS OF NAIL
     Dosage: 1 APPLICATION PER WEEK
     Route: 003
     Dates: start: 20200624
  2. ANTALNOX 550 MG, COMPRIME PELLICULE SECABLE [Suspect]
     Active Substance: NAPROXEN SODIUM
     Indication: ARTHRALGIA
     Dosage: IF NECESSARY
     Route: 048
     Dates: start: 202007
  3. ESOMEPRAZOLE ACTAVIS [Suspect]
     Active Substance: ESOMEPRAZOLE
     Indication: GASTROOESOPHAGEAL REFLUX DISEASE
     Route: 048
     Dates: start: 201902
  4. DOLIPRANE [Suspect]
     Active Substance: ACETAMINOPHEN
     Indication: PAIN
     Dosage: IF NECESSARY
     Route: 048
  5. L THYROXIN HENNING [Suspect]
     Active Substance: LEVOTHYROXINE SODIUM
     Indication: THYROIDECTOMY
     Route: 048
     Dates: start: 201602

REACTIONS (2)
  - Deafness bilateral [Not Recovered/Not Resolved]
  - Meningitis aseptic [Recovered/Resolved]

NARRATIVE: CASE EVENT DATE: 20200720
